FAERS Safety Report 6978953-7 (Version None)
Quarter: 2010Q3

REPORT INFORMATION
  Report Type: 
  Country: None (occurrence: None)
  Receive Date: 20100913
  Receipt Date: 20100902
  Transmission Date: 20110219
  Serious: Yes (Other)
  Sender: FDA-Public Use
  Company Number: US-MERCK-1009USA00400

PATIENT
  Sex: Male

DRUGS (2)
  1. EMEND [Suspect]
     Route: 048
  2. CORTICOSTEROIDS (UNSPECIFIED) [Suspect]
     Route: 065

REACTIONS (1)
  - PANCREATITIS [None]
